FAERS Safety Report 6626441-X (Version None)
Quarter: 2010Q1

REPORT INFORMATION
  Report Type: 
  Country: None (occurrence: None)
  Receive Date: 20100310
  Receipt Date: 20091111
  Transmission Date: 20100710
  Serious: No
  Sender: FDA-Public Use
  Company Number: US-ABBOTT-09P-163-0608727-00

PATIENT
  Sex: Female
  Weight: 88.53 kg

DRUGS (6)
  1. LUPRON DEPOT [Suspect]
     Indication: ENDOMETRIOSIS
     Dosage: 3 MOS UNSURE OF STRENGTH
     Route: 050
     Dates: start: 20091021
  2. AYGESTIN [Concomitant]
     Indication: PROPHYLAXIS
     Route: 048
     Dates: start: 20091021, end: 20091111
  3. AYGESTIN [Concomitant]
     Route: 048
     Dates: start: 20091111
  4. ALTACE [Concomitant]
     Indication: HYPERTENSION
     Route: 048
  5. PROTONIX [Concomitant]
     Indication: GASTROOESOPHAGEAL REFLUX DISEASE
     Route: 048
  6. PERCOCET [Concomitant]
     Indication: PAIN MANAGEMENT
     Route: 048
     Dates: start: 20090820

REACTIONS (7)
  - ABDOMINAL DISTENSION [None]
  - ENDOMETRIOSIS [None]
  - HAEMORRHAGE [None]
  - MOOD SWINGS [None]
  - NIGHT SWEATS [None]
  - OEDEMA [None]
  - WEIGHT INCREASED [None]
